FAERS Safety Report 7558638-9 (Version None)
Quarter: 2011Q2

REPORT INFORMATION
  Report Type: 
  Country: None (occurrence: None)
  Receive Date: 20110621
  Receipt Date: 20110613
  Transmission Date: 20111010
  Serious: No
  Sender: FDA-Public Use
  Company Number: US-BIOGENIDEC-2011BI008740

PATIENT
  Age: 59 Year
  Sex: Female

DRUGS (2)
  1. TYSABRI [Suspect]
     Route: 042
     Dates: start: 20110401
  2. TYSABRI [Suspect]
     Indication: MULTIPLE SCLEROSIS
     Route: 042
     Dates: start: 20080407, end: 20110101

REACTIONS (9)
  - BACK DISORDER [None]
  - URINARY INCONTINENCE [None]
  - GAIT DISTURBANCE [None]
  - MIGRAINE [None]
  - DRUG EFFECT DECREASED [None]
  - VISION BLURRED [None]
  - ABASIA [None]
  - EXERCISE TOLERANCE DECREASED [None]
  - MOBILITY DECREASED [None]
